FAERS Safety Report 18813860 (Version 1)
Quarter: 2021Q1

REPORT INFORMATION
  Report Type: Spontaneous
  Country: US (occurrence: US)
  Receive Date: 20210201
  Receipt Date: 20210201
  Transmission Date: 20210419
  Serious: Yes (Hospitalization, Other)
  Sender: FDA-Public Use
  Company Number: US-AUROBINDO-AUR-APL-2021-003737

PATIENT
  Age: 22 Year
  Sex: Female

DRUGS (1)
  1. LAMOTRIGINE. [Suspect]
     Active Substance: LAMOTRIGINE
     Indication: BORDERLINE PERSONALITY DISORDER
     Dosage: 6000 MILLIGRAM
     Route: 065

REACTIONS (7)
  - Confusional state [Unknown]
  - Overdose [Unknown]
  - Toxicity to various agents [Unknown]
  - Delirium [Unknown]
  - Pyrexia [Unknown]
  - Agitation [Unknown]
  - Rash [Unknown]
